FAERS Safety Report 7822234-6 (Version None)
Quarter: 2011Q4

REPORT INFORMATION
  Report Type: 
  Country: None (occurrence: None)
  Receive Date: 20111018
  Receipt Date: 20111010
  Transmission Date: 20120403
  Serious: Yes (Other)
  Sender: FDA-Public Use
  Company Number: US-ELI_LILLY_AND_COMPANY-US201110002772

PATIENT
  Sex: Male

DRUGS (14)
  1. LIPITOR [Concomitant]
     Dosage: UNK
  2. DIOVAN [Concomitant]
     Dosage: UNK
  3. FUROSEMIDE [Concomitant]
     Dosage: UNK
  4. HUMULIN N [Suspect]
     Dosage: 20 U, EACH EVENING
     Dates: start: 20100101
  5. COUMADIN [Concomitant]
     Dosage: UNK
  6. NOVOLOG [Concomitant]
     Indication: DIABETES MELLITUS
     Dosage: 4 U, QD
  7. HUMULIN N [Suspect]
     Dosage: 20 U, EACH EVENING
     Dates: start: 20100101
  8. NOVOLOG [Concomitant]
     Dosage: 6 U, QD
  9. NOVOLOG [Concomitant]
     Dosage: 10 U, EACH EVENING
  10. LEVOXYL [Concomitant]
     Dosage: UNK
  11. FLUOXETINE [Concomitant]
     Dosage: UNK
  12. VITAMIN D [Concomitant]
     Dosage: UNK
  13. HUMULIN N [Suspect]
     Indication: DIABETES MELLITUS
     Dosage: 20 U, EACH EVENING
  14. LUTEIN [Concomitant]
     Dosage: UNK

REACTIONS (8)
  - BLINDNESS [None]
  - MACULAR DEGENERATION [None]
  - UNDERDOSE [None]
  - BLOOD GLUCOSE INCREASED [None]
  - EYE EXCISION [None]
  - INCORRECT DOSE ADMINISTERED [None]
  - ANGLE CLOSURE GLAUCOMA [None]
  - VISUAL ACUITY REDUCED [None]
